FAERS Safety Report 23734097 (Version 1)
Quarter: 2024Q2

REPORT INFORMATION
  Report Type: Report from Study
  Country: US (occurrence: US)
  Receive Date: 20240412
  Receipt Date: 20240412
  Transmission Date: 20240716
  Serious: Yes (Hospitalization)
  Sender: FDA-Public Use
  Company Number: US-ABBVIE-5713473

PATIENT
  Sex: Female

DRUGS (1)
  1. VENCLEXTA [Suspect]
     Active Substance: VENETOCLAX
     Indication: Product used for unknown indication
     Dosage: TAKE ONE 50MG TABLET WITH TWO 10MG TABLETS (70MG TOTAL) BY MOUTH DAILY WITH FOOD AND WATER?FORM S...
     Route: 048
     Dates: end: 202403

REACTIONS (2)
  - Asthenia [Unknown]
  - Fall [Unknown]
